FAERS Safety Report 4864493-8 (Version None)
Quarter: 2005Q4

REPORT INFORMATION
  Report Type: 
  Country: None (occurrence: None)
  Receive Date: 20051222
  Receipt Date: 20051115
  Transmission Date: 20060501
  Serious: Yes (Disabling)
  Sender: FDA-Public Use
  Company Number: 2005AC01826

PATIENT
  Age: 44 Year
  Sex: Female

DRUGS (4)
  1. ARIMIDEX [Suspect]
     Indication: BREAST NEOPLASM
     Route: 048
     Dates: start: 20040705, end: 20051115
  2. PANTAZOL [Concomitant]
     Indication: REFLUX OESOPHAGITIS
     Route: 048
  3. ACETAMINOPHEN [Concomitant]
     Route: 048
  4. RADIOTHERAPY [Concomitant]
     Indication: BREAST CANCER

REACTIONS (2)
  - FATIGUE [None]
  - FIBROMYALGIA [None]
